FAERS Safety Report 7713803-2 (Version None)
Quarter: 2011Q3

REPORT INFORMATION
  Report Type: 
  Country: None (occurrence: None)
  Receive Date: 20110826
  Receipt Date: 20110818
  Transmission Date: 20111222
  Serious: No
  Sender: FDA-Public Use
  Company Number: US-PFIZER INC-2011191725

PATIENT
  Sex: Female
  Weight: 108.84 kg

DRUGS (2)
  1. PLAQUENIL [Concomitant]
     Indication: RHEUMATOID ARTHRITIS
     Dosage: 200 MG, 2X/DAY
  2. TRIAZOLAM [Suspect]
     Indication: SEDATIVE THERAPY
     Dosage: 0.125 MG, UNK
     Route: 048
     Dates: start: 20110810, end: 20110817

REACTIONS (2)
  - DRUG INEFFECTIVE [None]
  - DRUG SCREEN NEGATIVE [None]
